FAERS Safety Report 11544065 (Version 2)
Quarter: 2015Q3

REPORT INFORMATION
  Report Type: Spontaneous
  Country: GB (occurrence: GB)
  Receive Date: 20150924
  Receipt Date: 20150925
  Transmission Date: 20151125
  Serious: Yes (Other)
  Sender: FDA-Public Use
  Company Number: GB-ROCHE-1302381

PATIENT
  Sex: Female

DRUGS (2)
  1. HERCEPTIN [Suspect]
     Active Substance: TRASTUZUMAB
     Route: 058
  2. HERCEPTIN [Suspect]
     Active Substance: TRASTUZUMAB
     Indication: PRODUCT USED FOR UNKNOWN INDICATION
     Route: 058

REACTIONS (27)
  - Alopecia [Unknown]
  - Onychoclasis [Not Recovered/Not Resolved]
  - Wheezing [Unknown]
  - Dyspnoea [Unknown]
  - Pollakiuria [Unknown]
  - Rash pruritic [Unknown]
  - Fatigue [Not Recovered/Not Resolved]
  - Dyspnoea exertional [Unknown]
  - Oropharyngeal pain [Unknown]
  - Breast pain [Unknown]
  - Skin discolouration [Unknown]
  - Feeling abnormal [Unknown]
  - Seasonal allergy [Unknown]
  - Palpitations [Unknown]
  - Pain in extremity [Unknown]
  - Nausea [Unknown]
  - Lacrimation increased [Unknown]
  - Asthenia [Unknown]
  - Headache [Unknown]
  - Breast tenderness [Unknown]
  - Mouth ulceration [Unknown]
  - Cough [Unknown]
  - Breast cancer [Unknown]
  - Diarrhoea [Unknown]
  - Insomnia [Unknown]
  - Nasal ulcer [Not Recovered/Not Resolved]
  - Depressed mood [Unknown]
